FAERS Safety Report 21298672 (Version 1)
Quarter: 2022Q3

REPORT INFORMATION
  Report Type: Spontaneous
  Country: US (occurrence: None)
  Receive Date: 20220905
  Receipt Date: 20220905
  Transmission Date: 20221027
  Serious: Yes (Hospitalization)
  Sender: FDA-Public Use
  Company Number: None

PATIENT
  Age: 71 Year
  Sex: Male
  Weight: 89.36 kg

DRUGS (1)
  1. RIVAROXABAN [Suspect]
     Active Substance: RIVAROXABAN
     Indication: Cardiac ventricular thrombosis
     Dosage: 1 TAB EVERY DAY PO?
     Route: 048
     Dates: start: 20180413, end: 20211116

REACTIONS (9)
  - Blood urine present [None]
  - Flank pain [None]
  - Pain [None]
  - Haemorrhage urinary tract [None]
  - Dizziness [None]
  - Presyncope [None]
  - Haemorrhage [None]
  - Hypotension [None]
  - Cardiac ventricular thrombosis [None]

NARRATIVE: CASE EVENT DATE: 20211116
